FAERS Safety Report 10615031 (Version 1)
Quarter: 2014Q4

REPORT INFORMATION
  Report Type: Spontaneous
  Country: US (occurrence: US)
  Receive Date: 20141201
  Receipt Date: 20141201
  Transmission Date: 20150529
  Serious: No
  Sender: FDA-Public Use
  Company Number: US-009507513-1411USA011635

PATIENT
  Age: 34 Year
  Sex: Female
  Weight: 52.15 kg

DRUGS (2)
  1. FOLLISTIM [Concomitant]
     Active Substance: FOLLITROPIN
     Dosage: UNKNOWN
  2. GANIRELIX ACETATE INJECTION [Suspect]
     Active Substance: GANIRELIX ACETATE
     Indication: ASSISTED FERTILISATION
     Dosage: 250 MICROGRAM, QD
     Route: 058
     Dates: start: 20141116

REACTIONS (3)
  - Drug ineffective [Unknown]
  - Progesterone increased [Unknown]
  - Blood luteinising hormone increased [Unknown]

NARRATIVE: CASE EVENT DATE: 20141120
